FAERS Safety Report 20555054 (Version 1)
Quarter: 2022Q1

REPORT INFORMATION
  Report Type: Report from Study
  Country: US (occurrence: US)
  Receive Date: 20220304
  Receipt Date: 20220304
  Transmission Date: 20220424
  Serious: Yes (Disabling, Other)
  Sender: FDA-Public Use
  Company Number: US-KYOWAKIRIN-2018BKK001246

PATIENT

DRUGS (4)
  1. CRYSVITA [Suspect]
     Active Substance: BUROSUMAB-TWZA
     Indication: Hereditary hypophosphataemic rickets
     Dosage: 80 MG (4 X 20 MG VIAL) EVERY 4 WEEKS
     Route: 065
     Dates: start: 201804
  2. CRYSVITA [Suspect]
     Active Substance: BUROSUMAB-TWZA
     Dosage: 80 MG (4 X 20 MG VIAL) EVERY 4 WEEKS
     Route: 065
  3. ULORIC [Concomitant]
     Active Substance: FEBUXOSTAT
     Indication: Gout
     Dosage: 80 MG, ONCE A DAY
     Route: 065
  4. ADDERALL [Concomitant]
     Active Substance: AMPHETAMINE ASPARTATE\AMPHETAMINE SULFATE\DEXTROAMPHETAMINE SACCHARATE\DEXTROAMPHETAMINE SULFATE
     Indication: Attention deficit hyperactivity disorder
     Dosage: 10 MG, DAILY
     Route: 065

REACTIONS (13)
  - Arthralgia [Not Recovered/Not Resolved]
  - Gait disturbance [Recovered/Resolved]
  - Gait inability [Recovered/Resolved]
  - Back pain [Recovered/Resolved]
  - Hyperthyroidism [Unknown]
  - Muscular weakness [Not Recovered/Not Resolved]
  - Pyrexia [Recovered/Resolved]
  - Toothache [Recovered/Resolved]
  - Pain in extremity [Not Recovered/Not Resolved]
  - Asthenia [Unknown]
  - Hyperparathyroidism [Recovered/Resolved]
  - Injection site pain [Recovered/Resolved]
  - Injection site bruising [Recovered/Resolved]

NARRATIVE: CASE EVENT DATE: 20180101
